FAERS Safety Report 9851166 (Version 1)
Quarter: 2014Q1

REPORT INFORMATION
  Report Type: Spontaneous
  Country: US (occurrence: US)
  Receive Date: 20140128
  Receipt Date: 20140128
  Transmission Date: 20141002
  Serious: Yes (Hospitalization)
  Sender: FDA-Public Use
  Company Number: US-SANOFI-AVENTIS-2013SA054084

PATIENT
  Age: 76 Year
  Sex: Male
  Weight: 107.04 kg

DRUGS (20)
  1. LASIX [Suspect]
     Indication: OEDEMA
     Route: 048
     Dates: start: 20070717, end: 20121018
  2. LISINOPRIL [Suspect]
     Indication: HYPERTENSION
     Route: 048
     Dates: start: 20110112, end: 20121018
  3. CARVEDILOL [Suspect]
     Indication: HYPERTENSION
     Route: 048
     Dates: start: 20061025, end: 20121018
  4. CARVEDILOL [Suspect]
     Indication: PROPHYLAXIS
     Route: 048
     Dates: start: 20061025, end: 20121018
  5. PLACEBO [Suspect]
     Route: 065
     Dates: start: 20090507, end: 20090629
  6. CELECOXIB [Concomitant]
  7. IBUPROFEN [Concomitant]
  8. NAPROXEN [Concomitant]
  9. SKELAXIN [Concomitant]
     Indication: MUSCLE SPASMS
     Dates: start: 2008
  10. LOPID [Concomitant]
     Indication: HYPERCHOLESTEROLAEMIA
     Dates: start: 199612
  11. NEXIUM [Concomitant]
     Indication: GASTRIC DISORDER
     Dates: start: 20090507, end: 20090629
  12. LORTAB [Concomitant]
     Indication: ABDOMINAL HERNIA
     Dates: start: 20121005
  13. CYMBALTA [Concomitant]
     Indication: BACK PAIN
     Dates: start: 20090929
  14. OMEGA-3 [Concomitant]
     Indication: HYPERTRIGLYCERIDAEMIA
     Dates: start: 20120321
  15. LANTUS [Concomitant]
     Indication: TYPE 2 DIABETES MELLITUS
     Dates: start: 20111020
  16. SYMBICORT [Concomitant]
     Indication: DYSPNOEA
     Dates: start: 20110629
  17. ULTRAM [Concomitant]
     Indication: BACK PAIN
     Dates: start: 20101117
  18. PLAVIX [Concomitant]
     Indication: ANTIPLATELET THERAPY
     Dates: start: 2009
  19. FLEXERIL [Concomitant]
     Indication: MUSCLE SPASMS
     Dates: start: 20050801
  20. WELCHOL [Concomitant]
     Indication: HYPERTRIGLYCERIDAEMIA
     Dates: start: 20100804

REACTIONS (1)
  - Hypotension [Recovered/Resolved]
